FAERS Safety Report 5813343-1 (Version None)
Quarter: 2008Q3

REPORT INFORMATION
  Report Type: 
  Country: None (occurrence: None)
  Receive Date: 20080717
  Receipt Date: 20080709
  Transmission Date: 20090109
  Serious: Yes (Life-Threatening, Hospitalization)
  Sender: FDA-Public Use
  Company Number: US-GILEAD-2008-0016847

PATIENT
  Sex: Female
  Weight: 67.192 kg

DRUGS (7)
  1. LETAIRIS [Suspect]
     Indication: PULMONARY ARTERIAL HYPERTENSION
     Route: 048
     Dates: start: 20070901
  2. REVATIO [Concomitant]
     Route: 048
  3. LASIX [Concomitant]
     Indication: OEDEMA
     Route: 048
  4. OXYGEN [Concomitant]
     Route: 055
  5. TOPROL-XL [Concomitant]
     Route: 048
  6. POTASSIUM CHLORIDE [Concomitant]
     Route: 048
  7. HYDROXIZINE [Concomitant]
     Route: 048

REACTIONS (7)
  - COR PULMONALE [None]
  - DYSPNOEA [None]
  - OEDEMA PERIPHERAL [None]
  - PNEUMONIA [None]
  - RESPIRATORY FAILURE [None]
  - SEPSIS [None]
  - SYNCOPE [None]
